FAERS Safety Report 10226306 (Version 2)
Quarter: 2014Q2

REPORT INFORMATION
  Report Type: Spontaneous
  Country: JP (occurrence: JP)
  Receive Date: 20140609
  Receipt Date: 20140609
  Transmission Date: 20141212
  Serious: Yes (Hospitalization)
  Sender: FDA-Public Use
  Company Number: JP-BAXTER-2014BAX024716

PATIENT
  Age: 32 Year
  Sex: Male
  Weight: 50 kg

DRUGS (1)
  1. ADVATE 2000 [Suspect]
     Indication: PRODUCT USED FOR UNKNOWN INDICATION
     Route: 042
     Dates: start: 201402

REACTIONS (2)
  - Purpura [Not Recovered/Not Resolved]
  - Skin ulcer [Not Recovered/Not Resolved]
